FAERS Safety Report 6444019-8 (Version None)
Quarter: 2009Q4

REPORT INFORMATION
  Report Type: 
  Country: None (occurrence: None)
  Receive Date: 20091116
  Receipt Date: 20091116
  Transmission Date: 20100525
  Serious: Yes (Death)
  Sender: FDA-Public Use
  Company Number: None

PATIENT
  Age: 18 Year
  Sex: Female
  Weight: 63.6 kg

DRUGS (3)
  1. ANCOBON [Suspect]
     Indication: DRUG LEVEL
     Dosage: ANCOBON 1500 MG (FLUCTYOSINE) Q6H ORAL
     Route: 048
     Dates: start: 20091109, end: 20091110
  2. COMPAZINE [Suspect]
     Indication: NAUSEA
     Dosage: COMPAZINE ONCE I.M.
     Route: 030
     Dates: start: 20091110
  3. COMPAZINE [Suspect]
     Indication: VOMITING
     Dosage: COMPAZINE ONCE I.M.
     Route: 030
     Dates: start: 20091110

REACTIONS (9)
  - ANXIETY [None]
  - CARDIO-RESPIRATORY ARREST [None]
  - CHEST PAIN [None]
  - DIZZINESS [None]
  - HEART RATE INCREASED [None]
  - HYPOTENSION [None]
  - LIVER DISORDER [None]
  - VISUAL IMPAIRMENT [None]
  - VOMITING [None]
